FAERS Safety Report 4626478-6 (Version None)
Quarter: 2005Q1

REPORT INFORMATION
  Report Type: 
  Country: None (occurrence: None)
  Receive Date: 20050330
  Receipt Date: 20050316
  Transmission Date: 20050727
  Serious: Yes (Other)
  Sender: FDA-Public Use
  Company Number: 200511109BCC

PATIENT
  Age: 59 Year
  Sex: Female
  Weight: 77.1115 kg

DRUGS (4)
  1. MILK OF MAGNESIA TAB [Suspect]
     Indication: COLONOSCOPY
     Dosage: 480 MG, ONCE, ORAL
     Route: 048
     Dates: start: 20050313
  2. ALTACE [Concomitant]
  3. VITAMIN C [Concomitant]
  4. KLB6 VITAMINS [Concomitant]

REACTIONS (5)
  - ANAPHYLACTOID REACTION [None]
  - BLOOD PRESSURE INCREASED [None]
  - DYSPNOEA [None]
  - HEART RATE INCREASED [None]
  - TONGUE DISORDER [None]
